FAERS Safety Report 5384042-8 (Version None)
Quarter: 2007Q3

REPORT INFORMATION
  Report Type: 
  Country: None (occurrence: None)
  Receive Date: 20070711
  Receipt Date: 20070628
  Transmission Date: 20080115
  Serious: Yes (Hospitalization)
  Sender: FDA-Public Use
  Company Number: GB-AMGEN-US232961

PATIENT
  Sex: Male
  Weight: 20.6 kg

DRUGS (6)
  1. ENBREL [Suspect]
     Indication: RHEUMATOID ARTHRITIS
     Route: 058
     Dates: start: 20050303
  2. METHOTREXATE [Concomitant]
     Route: 048
     Dates: start: 20041201
  3. PERINDOPRIL [Concomitant]
     Route: 048
     Dates: start: 20041201
  4. CALCIUM CARBONATE [Concomitant]
     Route: 048
     Dates: start: 20041201
  5. PREDNISOLONE [Concomitant]
     Route: 048
     Dates: start: 20070301
  6. RANITIDINE [Concomitant]
     Route: 048
     Dates: start: 20041201

REACTIONS (4)
  - ABDOMINAL PAIN [None]
  - CHEST PAIN [None]
  - CONDITION AGGRAVATED [None]
  - JUVENILE ARTHRITIS [None]
